FAERS Safety Report 4310889-2 (Version None)
Quarter: 2004Q1

REPORT INFORMATION
  Report Type: 
  Country: None (occurrence: None)
  Receive Date: 20040302
  Receipt Date: 20040302
  Transmission Date: 20041129
  Serious: Yes (Death)
  Sender: FDA-Public Use
  Company Number: None

PATIENT
  Age: 63 Year
  Sex: Male
  Weight: 61.2356 kg

DRUGS (6)
  1. CARBOPLATIN [Suspect]
     Indication: OESOPHAGEAL CARCINOMA
     Dosage: 465 MG , 442 MG
     Dates: start: 20020401
  2. CARBOPLATIN [Suspect]
     Indication: OESOPHAGEAL CARCINOMA
     Dosage: 465 MG , 442 MG
     Dates: start: 20020422
  3. TAXOL [Suspect]
     Indication: OESOPHAGEAL CARCINOMA
     Dosage: 383 MG , 391 MG
     Dates: start: 20020401
  4. TAXOL [Suspect]
     Indication: OESOPHAGEAL CARCINOMA
     Dosage: 383 MG , 391 MG
     Dates: start: 20020422
  5. FLUOROURACIL [Suspect]
     Indication: OESOPHAGEAL CARCINOMA
     Dosage: 431 MG/DAY
     Dates: start: 20020401, end: 20020512
  6. ETHYOL [Suspect]
     Indication: OESOPHAGEAL CARCINOMA
     Dosage: 500 MG PRIOR TO EACH RT
     Dates: start: 20020402, end: 20020507

REACTIONS (8)
  - ACUTE RESPIRATORY DISTRESS SYNDROME [None]
  - ANOREXIA [None]
  - DRUG TOXICITY [None]
  - ILEUS [None]
  - MALNUTRITION [None]
  - PNEUMONIA [None]
  - PNEUMONIA PNEUMOCOCCAL [None]
  - SEPSIS [None]
